FAERS Safety Report 7500672-9 (Version None)
Quarter: 2011Q2

REPORT INFORMATION
  Report Type: 
  Country: None (occurrence: None)
  Receive Date: 20110524
  Receipt Date: 20110516
  Transmission Date: 20111010
  Serious: Yes (Other)
  Sender: FDA-Public Use
  Company Number: JP-MERCK-1105USA03094

PATIENT

DRUGS (4)
  1. MICARDIS [Suspect]
     Route: 048
  2. RIMATIL [Suspect]
     Route: 065
  3. ASPIRIN [Concomitant]
     Route: 065
  4. PEPCID RPD [Suspect]
     Route: 048

REACTIONS (2)
  - RETINAL HAEMORRHAGE [None]
  - VISUAL ACUITY REDUCED [None]
